FAERS Safety Report 5717485-0 (Version None)
Quarter: 2008Q2

REPORT INFORMATION
  Report Type: 
  Country: None (occurrence: None)
  Receive Date: 20080425
  Receipt Date: 20080422
  Transmission Date: 20081010
  Serious: Yes (Other)
  Sender: FDA-Public Use
  Company Number: DE-BAYER-200811701GPV

PATIENT
  Age: 69 Year
  Sex: Male
  Weight: 76 kg

DRUGS (18)
  1. FLUDARA [Suspect]
     Indication: CHRONIC LYMPHOCYTIC LEUKAEMIA
     Route: 042
     Dates: start: 20050919, end: 20050921
  2. FLUDARA [Suspect]
     Route: 042
     Dates: start: 20051025, end: 20051027
  3. ENDOXAN [Suspect]
     Indication: CHRONIC LYMPHOCYTIC LEUKAEMIA
     Route: 042
     Dates: start: 20050919, end: 20050921
  4. ENDOXAN [Suspect]
     Route: 042
     Dates: start: 20051025, end: 20051027
  5. MABTHERA [Suspect]
     Indication: CHRONIC LYMPHOCYTIC LEUKAEMIA
     Route: 042
     Dates: start: 20050921, end: 20050921
  6. MABTHERA [Suspect]
     Dosage: UNIT DOSE: 500 MG
     Route: 042
     Dates: start: 20051025, end: 20051025
  7. RINGER'S [Concomitant]
     Indication: DRUG USE FOR UNKNOWN INDICATION
     Dates: start: 20050920, end: 20050921
  8. SODIUM BICARBONATE [Concomitant]
     Indication: DRUG USE FOR UNKNOWN INDICATION
     Dates: start: 20050920, end: 20050921
  9. ALLOPURINOL [Concomitant]
     Indication: DRUG USE FOR UNKNOWN INDICATION
     Dosage: UNIT DOSE: 300 MG
     Dates: start: 20050920, end: 20050921
  10. ALLOPURINOL [Concomitant]
     Dosage: UNIT DOSE: 300 MG
     Dates: start: 20051025, end: 20051025
  11. ALLOPURINOL [Concomitant]
     Dosage: UNIT DOSE: 300 MG
     Dates: start: 20051026, end: 20051026
  12. ALLOPURINOL [Concomitant]
     Dosage: UNIT DOSE: 300 MG
     Dates: start: 20051027, end: 20051027
  13. SOLU DECORTIN H [Concomitant]
     Indication: DRUG USE FOR UNKNOWN INDICATION
     Dates: start: 20050919, end: 20050921
  14. SOLU DECORTIN H [Concomitant]
     Dates: start: 20051026, end: 20051027
  15. TAVEGIL [Concomitant]
     Indication: DRUG USE FOR UNKNOWN INDICATION
     Dates: start: 20050921, end: 20050921
  16. TAVEGIL [Concomitant]
     Dates: start: 20051025, end: 20051025
  17. NOVALGIN [Concomitant]
     Indication: DRUG USE FOR UNKNOWN INDICATION
     Dates: start: 20050921, end: 20050921
  18. TAGAMET [Concomitant]
     Indication: DRUG USE FOR UNKNOWN INDICATION
     Dates: start: 20051025, end: 20051025

REACTIONS (6)
  - CHILLS [None]
  - DYSPNOEA [None]
  - INTERSTITIAL LUNG DISEASE [None]
  - LUNG INFILTRATION [None]
  - MALAISE [None]
  - RESPIRATORY FAILURE [None]
